FAERS Safety Report 10686711 (Version 1)
Quarter: 2015Q1

REPORT INFORMATION
  Report Type: Spontaneous
  Country: US (occurrence: US)
  Receive Date: 20150101
  Receipt Date: 20150101
  Transmission Date: 20150720
  Serious: No
  Sender: FDA-Public Use
  Company Number: US-009507513-1412USA006215

PATIENT
  Age: 24 Year
  Sex: Female

DRUGS (5)
  1. RALTEGRAVIR POTASSIUM [Suspect]
     Active Substance: RALTEGRAVIR POTASSIUM
     Dosage: COURSE NUMBER:1, TOTAL DAILY DOSE:400 DF, STARTED IN 21TH WEEK OF GENSTATION AND ENDED IN 39 TH WEEK
     Route: 048
  2. ABACAVIR SULFATE (+) LAMIVUDINE (+) ZIDOVUDINE [Suspect]
     Active Substance: ABACAVIR SULFATE\LAMIVUDINE\ZIDOVUDINE
     Dosage: COURSE NUMBER:1, TOTAL DAILY DOSE:2 DF, STARTED IN 21TH WEEK OF GESTATION AND ENDED IN 39 TH WEEK
     Route: 048
  3. ATAZANAVIR SULFATE [Suspect]
     Active Substance: ATAZANAVIR SULFATE
     Dosage: COURSE NUMBER:1, TOTAL DAILY DOSE:400 DF, STARTED IN 39TH WEEK OF GESTATION
     Route: 048
  4. EMTRICITABINE (+) TENOFOVIR DISOPROXIL FUMARATE [Suspect]
     Active Substance: EMTRICITABINE\TENOFOVIR DISOPROXIL
     Dosage: COURSE NUMBER:1, TOTAL DAILY DOSE: 1 DF, STARTED IN 39TH WEEK OF GESTATION
     Route: 048
  5. RITONAVIR. [Suspect]
     Active Substance: RITONAVIR
     Dosage: COURSE NUMBER:1, TOTAL DAILY DOSE:100 DF, STARTED IN 39TH WEEK OF GESTATION
     Route: 048

REACTIONS (2)
  - Exposure during pregnancy [Unknown]
  - No adverse event [Unknown]

NARRATIVE: CASE EVENT DATE: 2013
